FAERS Safety Report 14895403 (Version 1)
Quarter: 2018Q2

REPORT INFORMATION
  Report Type: Spontaneous
  Country: FR (occurrence: FR)
  Receive Date: 20180515
  Receipt Date: 20180515
  Transmission Date: 20180711
  Serious: Yes (Other)
  Sender: FDA-Public Use
  Company Number: FR-MERCK KGAA-2047750

PATIENT
  Age: 58 Year
  Sex: Female

DRUGS (1)
  1. NOVOTHYROX [Suspect]
     Active Substance: LEVOTHYROXINE SODIUM
     Indication: PRODUCT USED FOR UNKNOWN INDICATION

REACTIONS (20)
  - Fall [None]
  - Mood swings [None]
  - Depression [None]
  - Lethargy [None]
  - Insomnia [None]
  - Blood thyroid stimulating hormone decreased [None]
  - Clavicle fracture [None]
  - Social avoidant behaviour [None]
  - Hypotension [None]
  - Muscle spasms [None]
  - Weight increased [None]
  - Anxiety [None]
  - Self esteem decreased [None]
  - Psychiatric symptom [None]
  - Ankle fracture [None]
  - Myalgia [None]
  - Fatigue [None]
  - Decreased activity [None]
  - Fear of falling [None]
  - Alopecia [None]

NARRATIVE: CASE EVENT DATE: 20170621
